FAERS Safety Report 5481133-8 (Version None)
Quarter: 2007Q4

REPORT INFORMATION
  Report Type: 
  Country: None (occurrence: None)
  Receive Date: 20071004
  Receipt Date: 20070924
  Transmission Date: 20080405
  Serious: Yes (Hospitalization)
  Sender: FDA-Public Use
  Company Number: 430033M07USA

PATIENT
  Age: 61 Year
  Sex: Male
  Weight: 108 kg

DRUGS (19)
  1. NOVANTRONE [Suspect]
     Indication: OFF LABEL USE
     Dosage: SEE IMAGE
     Route: 042
     Dates: start: 20070530
  2. NOVANTRONE [Suspect]
     Indication: OFF LABEL USE
     Dosage: SEE IMAGE
     Route: 042
     Dates: start: 20070619
  3. NOVANTRONE [Suspect]
     Indication: OFF LABEL USE
     Dosage: SEE IMAGE
     Route: 042
     Dates: start: 20070710
  4. NOVANTRONE [Suspect]
     Indication: OFF LABEL USE
     Dosage: SEE IMAGE
     Route: 042
     Dates: start: 20070731
  5. NOVANTRONE [Suspect]
     Indication: OFF LABEL USE
     Dosage: SEE IMAGE
     Route: 042
     Dates: start: 20070822
  6. CNTO 328 (MONOCLONAL ANTIBODIES) [Suspect]
     Dosage: 6 MG/KG, ONCE, INTRAVENOUS (NOT OTHERWISE SPECIFIED)
     Route: 042
     Dates: start: 20070530
  7. CNTO 328 (MONOCLONAL ANTIBODIES) [Suspect]
     Dosage: 6 MG/KG, ONCE, INTRAVENOUS (NOT OTHERWISE SPECIFIED)
     Route: 042
     Dates: start: 20070613
  8. CNTO 328 (MONOCLONAL ANTIBODIES) [Suspect]
     Dosage: 6 MG/KG, ONCE, INTRAVENOUS (NOT OTHERWISE SPECIFIED)
     Route: 042
     Dates: start: 20070626
  9. CNTO 328 (MONOCLONAL ANTIBODIES) [Suspect]
     Dosage: 6 MG/KG, ONCE, INTRAVENOUS (NOT OTHERWISE SPECIFIED)
     Route: 042
     Dates: start: 20070710
  10. CNTO 328 (MONOCLONAL ANTIBODIES) [Suspect]
     Dosage: 6 MG/KG, ONCE, INTRAVENOUS (NOT OTHERWISE SPECIFIED)
     Route: 042
     Dates: start: 20070724
  11. CNTO 328 (MONOCLONAL ANTIBODIES) [Suspect]
     Dosage: 6 MG/KG, ONCE, INTRAVENOUS (NOT OTHERWISE SPECIFIED)
     Route: 042
     Dates: start: 20070807
  12. CNTO 328 (MONOCLONAL ANTIBODIES) [Suspect]
     Dosage: 6 MG/KG, ONCE, INTRAVENOUS (NOT OTHERWISE SPECIFIED)
     Route: 042
     Dates: start: 20070822
  13. CNTO 328 (MONOCLONAL ANTIBODIES) [Suspect]
     Dosage: 6 MG/KG, ONCE, INTRAVENOUS (NOT OTHERWISE SPECIFIED)
     Route: 042
     Dates: start: 20070904
  14. PREDNISONE [Suspect]
     Dosage: 5 MG, 2 IN 1 DAYS, ORAL
     Route: 048
  15. ESCITALOPRAM OXALATE (ESCITALOPRAM OXALATE) [Concomitant]
  16. ZOLADEX [Concomitant]
  17. WARFARIN SODIUM [Concomitant]
  18. ONDANSETRON HCL [Concomitant]
  19. DEXAMETHASONE TAB [Concomitant]

REACTIONS (2)
  - CELLULITIS [None]
  - FEBRILE NEUTROPENIA [None]
